FAERS Safety Report 12502602 (Version 1)
Quarter: 2016Q2

REPORT INFORMATION
  Report Type: Spontaneous
  Country: GB (occurrence: GB)
  Receive Date: 20160627
  Receipt Date: 20160627
  Transmission Date: 20160815
  Serious: Yes (Hospitalization, Disabling)
  Sender: FDA-Public Use
  Company Number: PHHY2016GB084544

PATIENT
  Age: 15 Year
  Sex: Male

DRUGS (1)
  1. SOMATROPIN [Suspect]
     Active Substance: SOMATROPIN
     Indication: GROWTH HORMONE DEFICIENCY
     Dosage: TAKEN FOR APPROXIMATELY A YEAR.
     Route: 065
     Dates: end: 201512

REACTIONS (3)
  - Arthralgia [Unknown]
  - Bone disorder [Unknown]
  - No therapeutic response [Unknown]
